FAERS Safety Report 11207676 (Version 1)
Quarter: 2015Q2

REPORT INFORMATION
  Report Type: Spontaneous
  Country: US (occurrence: US)
  Receive Date: 20150622
  Receipt Date: 20150622
  Transmission Date: 20150821
  Serious: No
  Sender: FDA-Public Use
  Company Number: US-ABBVIE-15P-163-1392079-00

PATIENT
  Sex: Male

DRUGS (2)
  1. VIEKIRA PAK [Suspect]
     Active Substance: DASABUVIR\OMBITASVIR\PARITAPREVIR\RITONAVIR
     Indication: HEPATITIS C
     Dosage: 3 TAB IN AM, 1 IN PM
     Route: 048
     Dates: start: 201504
  2. MODERIBA [Suspect]
     Active Substance: RIBAVIRIN
     Indication: HEPATITIS C
     Dosage: UNKNOWN DOSAGE
     Route: 065
     Dates: start: 201504

REACTIONS (6)
  - Malaise [Unknown]
  - Nausea [Unknown]
  - Erectile dysfunction [Unknown]
  - Decreased appetite [Unknown]
  - Hyperhidrosis [Unknown]
  - Libido decreased [Unknown]
